FAERS Safety Report 7555181-8 (Version None)
Quarter: 2011Q2

REPORT INFORMATION
  Report Type: 
  Country: None (occurrence: None)
  Receive Date: 20110617
  Receipt Date: 20110608
  Transmission Date: 20111010
  Serious: Yes (Other)
  Sender: FDA-Public Use
  Company Number: PHHY2011US16898

PATIENT
  Sex: Female
  Weight: 63 kg

DRUGS (3)
  1. DETROL [Concomitant]
     Dosage: 4 MG, UNK
  2. GILENYA [Suspect]
     Indication: RELAPSING-REMITTING MULTIPLE SCLEROSIS
     Dosage: 0.5 MG
     Route: 048
     Dates: start: 20110207
  3. LEXAPRO [Concomitant]
     Dosage: 10 MG, UNK

REACTIONS (4)
  - LIP INFECTION [None]
  - HEADACHE [None]
  - OROPHARYNGEAL PAIN [None]
  - STAPHYLOCOCCAL INFECTION [None]
